FAERS Safety Report 21264700 (Version 1)
Quarter: 2022Q3

REPORT INFORMATION
  Report Type: Other
  Country: US (occurrence: US)
  Receive Date: 20220829
  Receipt Date: 20220829
  Transmission Date: 20221027
  Serious: Yes (Hospitalization, Other)
  Sender: FDA-Public Use
  Company Number: US-BoehringerIngelheim-2022-BI-188197

PATIENT
  Age: 39 Year
  Sex: Female

DRUGS (3)
  1. ALTEPLASE [Suspect]
     Active Substance: ALTEPLASE
     Indication: Pulmonary embolism
     Dosage: BOLUS, GIVEN OVER 2 HOURS ADMINISTERED SYSTEMATICALLY  50MG
     Route: 065
  2. ALTEPLASE [Suspect]
     Active Substance: ALTEPLASE
     Dosage: INFUSION, GIVEN OVER 2 HOURS ADMINISTERED SYSTEMATICALLY ?50MG
     Route: 065
  3. HEPARIN [Suspect]
     Active Substance: HEPARIN SODIUM
     Indication: Pulmonary embolism
     Dosage: FOA INFUSION
     Route: 065

REACTIONS (7)
  - Heparin-induced thrombocytopenia [Recovering/Resolving]
  - Pulmonary embolism [Recovering/Resolving]
  - Peripancreatic fluid collection [Recovering/Resolving]
  - Portal vein thrombosis [Recovering/Resolving]
  - Peripheral ischaemia [Recovering/Resolving]
  - Dry gangrene [Recovering/Resolving]
  - Mesenteric vein thrombosis [Recovering/Resolving]
